FAERS Safety Report 8000929-1 (Version None)
Quarter: 2011Q4

REPORT INFORMATION
  Report Type: 
  Country: None (occurrence: None)
  Receive Date: 20111222
  Receipt Date: 20111219
  Transmission Date: 20120403
  Serious: Yes (Other)
  Sender: FDA-Public Use
  Company Number: PT-BAYER-2011-118540

PATIENT
  Age: 41 Year
  Sex: Male

DRUGS (1)
  1. BETASERON [Suspect]
     Indication: RELAPSING-REMITTING MULTIPLE SCLEROSIS
     Dosage: 250 MCG/ML, QOD
     Dates: start: 19991006

REACTIONS (2)
  - INJECTION SITE REACTION [None]
  - INJECTION SITE ATROPHY [None]
